FAERS Safety Report 23213699 (Version 1)
Quarter: 2023Q4

REPORT INFORMATION
  Report Type: Spontaneous
  Country: US (occurrence: US)
  Receive Date: 20231121
  Receipt Date: 20231121
  Transmission Date: 20240110
  Serious: No
  Sender: FDA-Public Use
  Company Number: US-MYLANLABS-2023M1122129

PATIENT
  Sex: Female
  Weight: 90 kg

DRUGS (1)
  1. LEVOTHYROXINE SODIUM [Suspect]
     Active Substance: LEVOTHYROXINE SODIUM
     Indication: Thyroid disorder
     Dosage: 1 DOSAGE FORM, QD (ONE TABLET A DAY IN THE MORNING)
     Route: 048

REACTIONS (2)
  - Pruritus [Unknown]
  - Product dispensing error [Unknown]
